FAERS Safety Report 6407420-4 (Version None)
Quarter: 2009Q4

REPORT INFORMATION
  Report Type: 
  Country: None (occurrence: None)
  Receive Date: 20091020
  Receipt Date: 20091013
  Transmission Date: 20100525
  Serious: Yes (Other)
  Sender: FDA-Public Use
  Company Number: US-SANOFI-SYNTHELABO-A03200904768

PATIENT
  Sex: Male
  Weight: 81.63 kg

DRUGS (6)
  1. METFORMIN [Concomitant]
     Indication: DRUG USE FOR UNKNOWN INDICATION
     Route: 065
  2. FLOMAX [Concomitant]
     Indication: DRUG USE FOR UNKNOWN INDICATION
     Route: 065
  3. LISINOPRIL [Concomitant]
     Indication: DRUG USE FOR UNKNOWN INDICATION
     Route: 065
  4. SIMVASTATIN [Concomitant]
     Indication: DRUG USE FOR UNKNOWN INDICATION
     Route: 065
  5. PLAVIX [Suspect]
     Indication: TRANSIENT ISCHAEMIC ATTACK
     Route: 048
     Dates: start: 20090501
  6. PLAVIX [Suspect]
     Indication: VASCULAR DEMENTIA
     Route: 048
     Dates: start: 20090501

REACTIONS (4)
  - AMNESIA [None]
  - BALANCE DISORDER [None]
  - DEMENTIA [None]
  - FEELING ABNORMAL [None]
